FAERS Safety Report 18092618 (Version 1)
Quarter: 2020Q3

REPORT INFORMATION
  Report Type: Spontaneous
  Country: US (occurrence: US)
  Receive Date: 20200730
  Receipt Date: 20200730
  Transmission Date: 20201103
  Serious: No
  Sender: FDA-Public Use
  Company Number: US-GLENMARK PHARMACEUTICALS-2019GMK042573

PATIENT

DRUGS (2)
  1. BENADRYL [Concomitant]
     Active Substance: DIPHENHYDRAMINE HYDROCHLORIDE
     Indication: PRODUCT USED FOR UNKNOWN INDICATION
     Dosage: UNK
     Route: 065
  2. FLUOCINONIDE CREAM USP, 0.1 % [Suspect]
     Active Substance: FLUOCINONIDE
     Indication: SKIN IRRITATION
     Dosage: UNK UNK, SINGLE
     Route: 061
     Dates: start: 20190803, end: 20190803

REACTIONS (6)
  - Product administered at inappropriate site [Unknown]
  - Discomfort [Not Recovered/Not Resolved]
  - Skin lesion [Not Recovered/Not Resolved]
  - Fungal infection [Unknown]
  - Pain [Not Recovered/Not Resolved]
  - Prescription drug used without a prescription [Unknown]

NARRATIVE: CASE EVENT DATE: 20190803
